FAERS Safety Report 4338954-4 (Version None)
Quarter: 2004Q1

REPORT INFORMATION
  Report Type: 
  Country: None (occurrence: None)
  Receive Date: 20040329
  Receipt Date: 20040204
  Transmission Date: 20041129
  Serious: No
  Sender: FDA-Public Use
  Company Number: USA040258526

PATIENT
  Age: 6 Year
  Sex: Male
  Weight: 20 kg

DRUGS (1)
  1. STRATTERA [Suspect]
     Indication: DISTURBANCE IN ATTENTION
     Dosage: 10 MG/PER DAY  DAY
     Dates: start: 20040127

REACTIONS (4)
  - COUGH [None]
  - FATIGUE [None]
  - RHINORRHOEA [None]
  - SOMNOLENCE [None]
